FAERS Safety Report 17896337 (Version 1)
Quarter: 2020Q2

REPORT INFORMATION
  Report Type: Spontaneous
  Country: BE (occurrence: BE)
  Receive Date: 20200615
  Receipt Date: 20200615
  Transmission Date: 20200714
  Serious: Yes (Hospitalization)
  Sender: FDA-Public Use
  Company Number: BE-UNICHEM PHARMACEUTICALS (USA) INC-UCM202006-000701

PATIENT
  Age: 46 Year
  Sex: Female

DRUGS (4)
  1. VALPROIC ACID. [Concomitant]
     Active Substance: VALPROIC ACID
     Indication: EPILEPSY
     Dosage: UNKNOWN
  2. LAMOTRIGINE. [Suspect]
     Active Substance: LAMOTRIGINE
     Indication: EPILEPSY
     Dosage: UNKNOWN
  3. LEVETIRACETAM. [Concomitant]
     Active Substance: LEVETIRACETAM
     Indication: EPILEPSY
     Dosage: UNKNOWN
  4. GABAPENTIN. [Concomitant]
     Active Substance: GABAPENTIN
     Indication: EPILEPSY
     Dosage: UNKNOWN

REACTIONS (3)
  - Mental impairment [Recovered/Resolved]
  - Hypothermia [Recovered/Resolved]
  - Motor dysfunction [Recovered/Resolved]
